FAERS Safety Report 7798510-2 (Version None)
Quarter: 2011Q4

REPORT INFORMATION
  Report Type: 
  Country: None (occurrence: None)
  Receive Date: 20111005
  Receipt Date: 20110926
  Transmission Date: 20120403
  Serious: No
  Sender: FDA-Public Use
  Company Number: GB-ASTRAZENECA-2011SE54192

PATIENT
  Age: 50 Year
  Sex: Female
  Weight: 82.1 kg

DRUGS (11)
  1. QUETIAPINE [Suspect]
     Route: 048
     Dates: start: 20110901
  2. FELODIPINE MR [Concomitant]
     Indication: RENAL FAILURE CHRONIC
     Route: 048
     Dates: start: 20110513
  3. SODIUM BICARBONATE [Concomitant]
     Indication: RENAL FAILURE CHRONIC
     Route: 048
     Dates: start: 20110513
  4. CLONAZEPAM [Concomitant]
     Indication: BIPOLAR I DISORDER
     Route: 048
  5. CLONAZEPAM [Concomitant]
     Indication: HYPOMANIA
     Route: 048
  6. FEXOFENADINE [Concomitant]
     Indication: URTICARIA
     Route: 048
     Dates: start: 20110324
  7. OMEPRAZOLE [Concomitant]
     Route: 048
     Dates: start: 20110324
  8. QUETIAPINE [Suspect]
     Route: 048
     Dates: start: 20110901
  9. QUETIAPINE [Suspect]
     Indication: BIPOLAR DISORDER
     Route: 048
     Dates: start: 20110801, end: 20110901
  10. QUETIAPINE [Suspect]
     Route: 048
     Dates: start: 20110918
  11. FELODIPINE MR [Concomitant]
     Indication: HYPERTENSION
     Route: 048
     Dates: start: 20110513

REACTIONS (3)
  - MOOD ALTERED [None]
  - OVERDOSE [None]
  - FATIGUE [None]
